FAERS Safety Report 7547560-X (Version None)
Quarter: 2011Q2

REPORT INFORMATION
  Report Type: 
  Country: None (occurrence: None)
  Receive Date: 20110614
  Receipt Date: 20110609
  Transmission Date: 20111010
  Serious: No
  Sender: FDA-Public Use
  Company Number: US-PFIZER INC-2011127495

PATIENT
  Sex: Female

DRUGS (3)
  1. ADVIL LIQUI-GELS [Suspect]
     Indication: MENSTRUAL DISCOMFORT
     Dosage: 6-8 TABLETS, UNKNOWN
     Route: 065
  2. MOTRIN [Suspect]
     Dosage: UNK
     Route: 065
  3. TYLENOL-500 [Suspect]
     Dosage: UNK
     Route: 065

REACTIONS (2)
  - OVERDOSE [None]
  - DRUG INEFFECTIVE [None]
